FAERS Safety Report 19388060 (Version 2)
Quarter: 2021Q2

REPORT INFORMATION
  Report Type: Report from Study
  Country: US (occurrence: US)
  Receive Date: 20210608
  Receipt Date: 20210618
  Transmission Date: 20210717
  Serious: Yes (Other)
  Sender: FDA-Public Use
  Company Number: NVSC2021US124283

PATIENT
  Age: 66 Year
  Sex: Female
  Weight: 73.3 kg

DRUGS (2)
  1. LAMPRENE [Suspect]
     Active Substance: CLOFAZIMINE
     Indication: MYCOBACTERIAL INFECTION
     Dosage: 100 MG
     Route: 048
     Dates: start: 20210311
  2. OMADACYCLINE. [Concomitant]
     Active Substance: OMADACYCLINE
     Indication: MYCOBACTERIAL INFECTION
     Dosage: 450 MG
     Route: 065
     Dates: start: 20210318, end: 20210328

REACTIONS (6)
  - Sinusitis [Unknown]
  - Gastrooesophageal reflux disease [Recovering/Resolving]
  - Insomnia [Not Recovered/Not Resolved]
  - Dyspnoea [Not Recovered/Not Resolved]
  - Cough [Not Recovered/Not Resolved]
  - Bronchiectasis [Unknown]

NARRATIVE: CASE EVENT DATE: 20210329
